FAERS Safety Report 9250609 (Version 1)
Quarter: 2013Q2

REPORT INFORMATION
  Report Type: Report from Study
  Country: DE (occurrence: DE)
  Receive Date: 20130424
  Receipt Date: 20130424
  Transmission Date: 20140414
  Serious: Yes (Hospitalization, Other)
  Sender: FDA-Public Use
  Company Number: DE-ROCHE-1215950

PATIENT
  Age: 65 Year
  Sex: Male
  Weight: 92 kg

DRUGS (6)
  1. RITUXIMAB [Suspect]
     Indication: B-CELL LYMPHOMA
     Route: 065
     Dates: start: 201108, end: 201203
  2. RITUXIMAB [Suspect]
     Route: 065
     Dates: start: 201204, end: 201205
  3. CYCLOPHOSPHAMID [Suspect]
     Indication: B-CELL LYMPHOMA
     Route: 065
     Dates: start: 201108, end: 201203
  4. DOXORUBICIN [Suspect]
     Indication: B-CELL LYMPHOMA
     Route: 065
     Dates: start: 201108, end: 201203
  5. VINCRISTIN [Suspect]
     Indication: B-CELL LYMPHOMA
     Route: 065
     Dates: start: 201108, end: 201203
  6. PREDNISOLON [Suspect]
     Indication: B-CELL LYMPHOMA
     Route: 065
     Dates: start: 201108, end: 201203

REACTIONS (3)
  - Hepatitis B [Unknown]
  - Acute hepatic failure [Unknown]
  - Epistaxis [Unknown]
